FAERS Safety Report 7414413-7 (Version None)
Quarter: 2011Q2

REPORT INFORMATION
  Report Type: 
  Country: None (occurrence: None)
  Receive Date: 20110414
  Receipt Date: 20110406
  Transmission Date: 20111010
  Serious: Yes (Hospitalization, Other)
  Sender: FDA-Public Use
  Company Number: JP-ASTELLAS-2011JP000518

PATIENT
  Sex: Female
  Weight: 58 kg

DRUGS (7)
  1. ITOROL [Concomitant]
     Dosage: 20 MG, BID
     Route: 048
     Dates: start: 20040101
  2. OMEPRAL [Concomitant]
     Dosage: 40 MG, UNKNOWN/D
     Route: 048
  3. VESICARE [Suspect]
     Indication: HYPERTONIC BLADDER
     Dosage: 2.5 MG, QID
     Route: 048
     Dates: start: 20091201, end: 20110114
  4. KELNAC [Concomitant]
     Dosage: UNK
     Route: 048
  5. ZADITEN [Concomitant]
     Dosage: UNK
     Route: 048
  6. PREDONINE [Concomitant]
     Dosage: 5 MG, BID
     Route: 048
  7. MUCOSTA [Concomitant]
     Dosage: UNK
     Route: 048

REACTIONS (4)
  - DIABETES MELLITUS [None]
  - ICHTHYOSIS [None]
  - ANAEMIA [None]
  - PULMONARY EMBOLISM [None]
